FAERS Safety Report 24313680 (Version 2)
Quarter: 2024Q3

REPORT INFORMATION
  Report Type: Spontaneous
  Country: US (occurrence: US)
  Receive Date: 20240912
  Receipt Date: 20240912
  Transmission Date: 20241017
  Serious: Yes (Other)
  Sender: ROCHE
  Company Number: US-ROCHE-10000077996

PATIENT

DRUGS (1)
  1. AVASTIN [Suspect]
     Active Substance: BEVACIZUMAB
     Indication: Necrosis
     Route: 065

REACTIONS (4)
  - Central nervous system necrosis [Unknown]
  - Cognitive disorder [Unknown]
  - Dysarthria [Unknown]
  - Off label use [Unknown]
